FAERS Safety Report 23279508 (Version 2)
Quarter: 2024Q1

REPORT INFORMATION
  Report Type: Spontaneous
  Country: US (occurrence: US)
  Receive Date: 20231210
  Receipt Date: 20240108
  Transmission Date: 20240410
  Serious: Yes (Other)
  Sender: FDA-Public Use
  Company Number: US-AUROBINDO-AUR-APL-2023-076984

PATIENT
  Age: 60 Year
  Sex: Female

DRUGS (1)
  1. HYDROCORTISONE [Suspect]
     Active Substance: HYDROCORTISONE
     Indication: Secondary adrenocortical insufficiency
     Dosage: 100 MILLIGRAM,Q8H
     Route: 042

REACTIONS (3)
  - Diabetes insipidus [Unknown]
  - Polyuria [Recovered/Resolved]
  - Hypernatraemia [Unknown]
